FAERS Safety Report 9242260 (Version 1)
Quarter: 2013Q2

REPORT INFORMATION
  Report Type: Report from Study
  Country: FR (occurrence: FR)
  Receive Date: 20130419
  Receipt Date: 20130419
  Transmission Date: 20140414
  Serious: Yes (Hospitalization)
  Sender: FDA-Public Use
  Company Number: FR-009507513-1304FRA003677

PATIENT
  Age: 56 Year
  Sex: Male
  Weight: 59 kg

DRUGS (18)
  1. BOCEPREVIR [Suspect]
     Indication: HEPATITIS C
     Dosage: 800 MG, TID
     Route: 048
     Dates: start: 20120919
  2. RIBAVIRIN [Suspect]
     Indication: HEPATITIS C
     Dosage: 400 MG, BID
     Dates: start: 20121114
  3. PEGINTERFERON ALFA-2A [Suspect]
     Indication: HEPATITIS C
     Dosage: 135 MICROGRAM, QW
     Dates: start: 20121115
  4. SUBUTEX [Concomitant]
     Indication: DEPENDENCE
     Dosage: 6 MG, QD
     Dates: start: 2002
  5. SPIRIVA [Concomitant]
     Indication: CHRONIC OBSTRUCTIVE PULMONARY DISEASE
     Dosage: 18 MICROGRAM, QD
     Dates: start: 2008
  6. SPECIAFOLDINE [Concomitant]
     Indication: ANAEMIA PROPHYLAXIS
     Dosage: 5 MG, QD
     Dates: start: 20120822
  7. ACETAMINOPHEN [Concomitant]
     Dosage: 500 MG, PRN
     Dates: start: 20120822
  8. UVEDOSE [Concomitant]
     Indication: VITAMIN D DEFICIENCY
     Dosage: 1 DF, QM3
     Dates: start: 20120822
  9. VENTOLINE (ALBUTEROL) [Concomitant]
     Indication: DYSPNOEA
     Dosage: 2.5 MG, TID
     Dates: start: 20121001
  10. ATROVENT [Concomitant]
     Indication: DYSPNOEA
     Dosage: 0.5 MG, TID
     Dates: start: 20121001
  11. OXYGEN [Concomitant]
     Indication: DYSPNOEA
     Dosage: 2 L, UNK
     Dates: start: 20121001
  12. ONBREZ [Concomitant]
     Indication: CHRONIC OBSTRUCTIVE PULMONARY DISEASE
     Dosage: 150 MICROGRAM, QD
     Dates: start: 20121030
  13. CELLUVISC [Concomitant]
     Indication: DRY EYE
     Dosage: UNK
     Dates: start: 20121030
  14. LASILIX [Concomitant]
     Indication: OEDEMA PERIPHERAL
     Dosage: 20 MG, BID
     Dates: start: 20121113
  15. KALEORID [Concomitant]
     Indication: OEDEMA PERIPHERAL
     Dosage: 1000 MG, QOD
     Dates: start: 20121113
  16. ATARAX (HYDROXYZINE HYDROCHLORIDE) [Concomitant]
     Indication: PRURITUS
     Dosage: 12.5 MG, PRN
     Dates: start: 20121211
  17. OFLOCET (OFLOXACIN) [Concomitant]
     Indication: INFECTION
     Dosage: 200 MG, BID
     Dates: start: 20130402
  18. DEXERYL CREAM [Concomitant]
     Indication: DRY SKIN PROPHYLAXIS
     Dosage: 1 DF, QD
     Dates: start: 20120822

REACTIONS (1)
  - Radiotherapy [Unknown]
